FAERS Safety Report 18712429 (Version 4)
Quarter: 2021Q1

REPORT INFORMATION
  Report Type: Spontaneous
  Country: US (occurrence: US)
  Receive Date: 20210107
  Receipt Date: 20210315
  Transmission Date: 20210419
  Serious: No
  Sender: FDA-Public Use
  Company Number: US-GLAXOSMITHKLINE-US2021AMR001827

PATIENT
  Sex: Female

DRUGS (3)
  1. ZEJULA [Suspect]
     Active Substance: NIRAPARIB
     Dosage: 200 MG, QD
  2. ZEJULA [Suspect]
     Active Substance: NIRAPARIB
     Dosage: 200 MG, QD
  3. ZEJULA [Suspect]
     Active Substance: NIRAPARIB
     Indication: OVARIAN CANCER
     Dosage: 200 MG, QD
     Dates: start: 20201220

REACTIONS (16)
  - Headache [Unknown]
  - Drug monitoring procedure not performed [Unknown]
  - Product availability issue [Unknown]
  - Stress [Unknown]
  - Tongue discolouration [Unknown]
  - Blood magnesium decreased [Unknown]
  - Hunger [Unknown]
  - Nausea [Not Recovered/Not Resolved]
  - Pruritus [Recovered/Resolved]
  - Hypoaesthesia [Unknown]
  - Muscle spasms [Not Recovered/Not Resolved]
  - Blood potassium decreased [Unknown]
  - Middle insomnia [Unknown]
  - Product dose omission issue [Unknown]
  - Anaemia [Unknown]
  - Blood magnesium increased [Unknown]
